FAERS Safety Report 20132957 (Version 1)
Quarter: 2021Q4

REPORT INFORMATION
  Report Type: Spontaneous
  Country: CA (occurrence: CA)
  Receive Date: 20211201
  Receipt Date: 20211201
  Transmission Date: 20220304
  Serious: Yes (Other)
  Sender: FDA-Public Use
  Company Number: CA-TEVA-2021-CA-1981648

PATIENT
  Age: 60 Year
  Sex: Male

DRUGS (12)
  1. AMIODARONE [Suspect]
     Active Substance: AMIODARONE
     Route: 065
  2. CLOBETASOL [Suspect]
     Active Substance: CLOBETASOL
     Route: 065
  3. METFORMIN HYDROCHLORIDE [Suspect]
     Active Substance: METFORMIN HYDROCHLORIDE
     Route: 065
  4. RAMIPRIL [Suspect]
     Active Substance: RAMIPRIL
     Route: 065
  5. ROSUVASTATIN [Suspect]
     Active Substance: ROSUVASTATIN
     Route: 065
  6. APIXABAN [Concomitant]
     Active Substance: APIXABAN
     Route: 065
  7. DEPO-MEDROL [Concomitant]
     Active Substance: METHYLPREDNISOLONE ACETATE
     Route: 065
  8. JARDIANCE [Concomitant]
     Active Substance: EMPAGLIFLOZIN
     Route: 065
  9. METHOTREXATE [Concomitant]
     Active Substance: METHOTREXATE
     Route: 065
  10. PANTOPRAZOLE MAGNESIUM [Concomitant]
     Active Substance: PANTOPRAZOLE MAGNESIUM
     Route: 065
  11. PNEUMOCOCCAL VACCINE CONJ [Concomitant]
     Route: 065
  12. SULFASALAZINE [Concomitant]
     Active Substance: SULFASALAZINE
     Route: 065

REACTIONS (17)
  - Abdominal discomfort [Unknown]
  - Arthralgia [Unknown]
  - Arthropathy [Unknown]
  - Enthesopathy [Unknown]
  - Joint effusion [Unknown]
  - Joint range of motion decreased [Unknown]
  - Joint swelling [Unknown]
  - Mobility decreased [Unknown]
  - Musculoskeletal stiffness [Unknown]
  - Pain [Unknown]
  - Pain in extremity [Unknown]
  - Paraesthesia [Unknown]
  - Psoriasis [Unknown]
  - Psoriatic arthropathy [Unknown]
  - Spinal pain [Unknown]
  - Synovitis [Unknown]
  - Weight increased [Unknown]
